FAERS Safety Report 14071902 (Version 4)
Quarter: 2019Q1

REPORT INFORMATION
  Report Type: Spontaneous
  Country: US (occurrence: US)
  Receive Date: 20171010
  Receipt Date: 20190313
  Transmission Date: 20190417
  Serious: No
  Sender: FDA-Public Use
  Company Number: US-SA-2017SA141608

PATIENT
  Age: 58 Year
  Sex: Male

DRUGS (16)
  1. THIAMINE. [Concomitant]
     Active Substance: THIAMINE
  2. ALLOPURINOL. [Concomitant]
     Active Substance: ALLOPURINOL
  3. DIOVAN [Concomitant]
     Active Substance: VALSARTAN
  4. VITAMIN D3 [Concomitant]
     Active Substance: CHOLECALCIFEROL
  5. EUCRISA [Concomitant]
     Active Substance: CRISABOROLE
  6. FENOFIBRATE. [Concomitant]
     Active Substance: FENOFIBRATE
  7. ELIDEL [Concomitant]
     Active Substance: PIMECROLIMUS
  8. PROAIR HFA [Concomitant]
     Active Substance: ALBUTEROL SULFATE
  9. AMITRIPTYLIN [Concomitant]
     Active Substance: AMITRIPTYLINE
  10. CLOBETASOL [Concomitant]
     Active Substance: CLOBETASOL
  11. METRONIDAZOLE. [Concomitant]
     Active Substance: METRONIDAZOLE
  12. DUPIXENT [Suspect]
     Active Substance: DUPILUMAB
     Indication: DERMATITIS ATOPIC
     Dosage: 300 MG,QOW
     Route: 058
     Dates: start: 20170714
  13. TAMSULOSIN [Concomitant]
     Active Substance: TAMSULOSIN
  14. ALPRAZOLAM. [Concomitant]
     Active Substance: ALPRAZOLAM
  15. VALACYCLOVIR [Concomitant]
     Active Substance: VALACYCLOVIR HYDROCHLORIDE
  16. OLOPATADINE. [Concomitant]
     Active Substance: OLOPATADINE

REACTIONS (8)
  - Paraesthesia [Not Recovered/Not Resolved]
  - Lacrimation increased [Not Recovered/Not Resolved]
  - Hypersensitivity [Not Recovered/Not Resolved]
  - Eczema [Recovered/Resolved]
  - Eye pruritus [Not Recovered/Not Resolved]
  - Eye swelling [Not Recovered/Not Resolved]
  - Dermatitis atopic [Not Recovered/Not Resolved]
  - Eye allergy [Not Recovered/Not Resolved]

NARRATIVE: CASE EVENT DATE: 201707
